FAERS Safety Report 10073754 (Version 2)
Quarter: 2014Q2

REPORT INFORMATION
  Report Type: Report from Study
  Country: US (occurrence: US)
  Receive Date: 20140411
  Receipt Date: 20140411
  Transmission Date: 20141212
  Serious: No
  Sender: FDA-Public Use
  Company Number: US-BAXTER-2012BAX012110

PATIENT
  Age: 51 Year
  Sex: Female
  Weight: 90.91 kg

DRUGS (10)
  1. GAMMAGARD LIQUID [Suspect]
     Indication: IMMUNODEFICIENCY COMMON VARIABLE
     Route: 058
     Dates: start: 20120627, end: 20120627
  2. GAMMAGARD LIQUID [Suspect]
     Route: 058
     Dates: start: 20120718, end: 20120718
  3. CARAFATE [Concomitant]
     Indication: ULCER
     Route: 048
  4. ALLEGRA [Concomitant]
     Indication: HYPERSENSITIVITY
     Route: 048
  5. PRILOSEC [Concomitant]
     Indication: GASTROINTESTINAL DISORDER
     Route: 048
  6. TOPROL [Concomitant]
     Indication: MIGRAINE
     Route: 048
  7. ZYRTEC [Concomitant]
     Indication: PREMEDICATION
     Route: 048
     Dates: start: 20120627, end: 20120627
  8. ZYRTEC [Concomitant]
     Route: 048
     Dates: start: 20120718, end: 20120718
  9. BENADRYL [Concomitant]
     Indication: PREMEDICATION
     Route: 048
     Dates: start: 20120627, end: 20120627
  10. GAMUNEX [Concomitant]
     Indication: IMMUNODEFICIENCY COMMON VARIABLE
     Route: 042
     Dates: start: 20100114, end: 2012

REACTIONS (1)
  - Muscle spasms [Recovered/Resolved]
